FAERS Safety Report 9720466 (Version 2)
Quarter: 2013Q4

REPORT INFORMATION
  Report Type: Report from Study
  Country: CA (occurrence: CA)
  Receive Date: 20131129
  Receipt Date: 20131206
  Transmission Date: 20140711
  Serious: Yes (Hospitalization)
  Sender: FDA-Public Use
  Company Number: CA-JNJFOC-20131115250

PATIENT
  Age: 27 Year
  Sex: Male
  Weight: 64 kg

DRUGS (4)
  1. REMICADE [Suspect]
     Indication: CROHN^S DISEASE
     Route: 042
     Dates: start: 20090824
  2. IRON [Concomitant]
     Route: 065
  3. VITAMIN B [Concomitant]
     Route: 065
  4. VITAMIN D [Concomitant]
     Route: 065

REACTIONS (1)
  - Intestinal resection [Unknown]
